FAERS Safety Report 9181756 (Version 2)
Quarter: 2013Q2

REPORT INFORMATION
  Report Type: Spontaneous
  Country: FR (occurrence: FR)
  Receive Date: 20130322
  Receipt Date: 20130404
  Transmission Date: 20140414
  Serious: Yes (Other)
  Sender: FDA-Public Use
  Company Number: FR-JNJFOC-20130307970

PATIENT
  Sex: 0

DRUGS (2)
  1. TRAMADOL [Suspect]
     Indication: PAIN
     Route: 065
  2. THIOTEPA [Suspect]
     Indication: NEOPLASM
     Dosage: 600 MG/M2: 82 COURSES; 720 MG/M2: 76 COURSES; 900 MG/M2: 149 COURSES
     Route: 065
     Dates: start: 198705, end: 201103

REACTIONS (10)
  - Coma [Recovered/Resolved]
  - Convulsion [Recovered/Resolved]
  - Pyramidal tract syndrome [Recovered/Resolved]
  - Cerebellar syndrome [Recovered/Resolved]
  - Opsoclonus myoclonus [Recovered/Resolved]
  - Confusional state [Recovered/Resolved]
  - Headache [Recovered/Resolved]
  - Tremor [Recovered/Resolved]
  - Dizziness [Recovered/Resolved]
  - Vision blurred [Recovered/Resolved]
